FAERS Safety Report 6862395-9 (Version None)
Quarter: 2010Q3

REPORT INFORMATION
  Report Type: 
  Country: None (occurrence: None)
  Receive Date: 20100719
  Receipt Date: 20100706
  Transmission Date: 20110219
  Serious: Yes (Hospitalization)
  Sender: FDA-Public Use
  Company Number: 220001J10ESP

PATIENT
  Age: 13 Year
  Sex: Male
  Weight: 36 kg

DRUGS (5)
  1. SAIZEN [Suspect]
     Indication: BODY HEIGHT BELOW NORMAL
     Dosage: 1 IN 1 D, SUBCUTANEOUS; 1.1 MG, 1 IN 1 D, SUBCUTANEOUS; 1.3 MG, 1 IN 1 D, SUBCUTANEOUS
     Route: 058
     Dates: start: 20080501, end: 20090101
  2. SAIZEN [Suspect]
     Indication: BODY HEIGHT BELOW NORMAL
     Dosage: 1 IN 1 D, SUBCUTANEOUS; 1.1 MG, 1 IN 1 D, SUBCUTANEOUS; 1.3 MG, 1 IN 1 D, SUBCUTANEOUS
     Route: 058
     Dates: start: 20090501, end: 20091101
  3. SAIZEN [Suspect]
     Indication: BODY HEIGHT BELOW NORMAL
     Dosage: 1 IN 1 D, SUBCUTANEOUS; 1.1 MG, 1 IN 1 D, SUBCUTANEOUS; 1.3 MG, 1 IN 1 D, SUBCUTANEOUS
     Route: 058
     Dates: start: 20091101, end: 20100618
  4. RISPERIDONE [Concomitant]
  5. TOPIRAMATE [Concomitant]

REACTIONS (2)
  - CONDITION AGGRAVATED [None]
  - TOURETTE'S DISORDER [None]
